FAERS Safety Report 5531367-9 (Version None)
Quarter: 2007Q4

REPORT INFORMATION
  Report Type: 
  Country: None (occurrence: None)
  Receive Date: 20071127
  Receipt Date: 20071113
  Transmission Date: 20080405
  Serious: Yes (Death, Hospitalization, Other)
  Sender: FDA-Public Use
  Company Number: RENA-12329

PATIENT
  Age: 49 Year
  Sex: Female

DRUGS (6)
  1. RENAGEL [Suspect]
     Indication: HYPERPHOSPHATAEMIA
     Dosage: 3.2 G TID PO
     Route: 048
     Dates: start: 20070614, end: 20071105
  2. ZANTAC. MFR: GLAXO LABORATORIES LIMITED [Concomitant]
  3. BIOFERMIN. MFR: TAKEDA CHEMICAL IND. [Concomitant]
  4. BUSCOPAN. MFR: BOEHRINGER C.H. SOHN INGELHEIM [Concomitant]
  5. ROWATINEX. MFR: ROWA-WAGNER [Concomitant]
  6. GASCON. MFR: KISSEI PHARM. COY. [Concomitant]

REACTIONS (7)
  - ASCITES [None]
  - CACHEXIA [None]
  - COLON CANCER METASTATIC [None]
  - ILL-DEFINED DISORDER [None]
  - METASTASES TO LUNG [None]
  - METASTASES TO THE MEDIASTINUM [None]
  - METASTASIS [None]
